FAERS Safety Report 13629759 (Version 1)
Quarter: 2017Q2

REPORT INFORMATION
  Report Type: Spontaneous
  Country: None (occurrence: GB)
  Receive Date: 20170608
  Receipt Date: 20170608
  Transmission Date: 20170830
  Serious: Yes (Hospitalization)
  Sender: FDA-Public Use
  Company Number: GB-ALLERGAN-1723355US

PATIENT
  Sex: Female

DRUGS (2)
  1. MEMANTINE HCL - BP [Suspect]
     Active Substance: MEMANTINE
     Indication: DEMENTIA ALZHEIMER^S TYPE
     Dosage: 5 MG, QD
     Route: 048
  2. MEMANTINE HCL - BP [Suspect]
     Active Substance: MEMANTINE
     Dosage: 100 MG, QD
     Route: 048

REACTIONS (3)
  - Drug dispensing error [Unknown]
  - Accidental overdose [Unknown]
  - Unresponsive to stimuli [Recovered/Resolved]
